FAERS Safety Report 6126060-8 (Version None)
Quarter: 2009Q1

REPORT INFORMATION
  Report Type: 
  Country: None (occurrence: None)
  Receive Date: 20090320
  Receipt Date: 20090312
  Transmission Date: 20090719
  Serious: Yes (Hospitalization, Other)
  Sender: FDA-Public Use
  Company Number: HR-JNJFOC-20090300424

PATIENT
  Age: 50 Year
  Sex: Male

DRUGS (4)
  1. RISPOLEPT CONSTA [Suspect]
     Route: 030
  2. RISPOLEPT CONSTA [Suspect]
     Indication: DELUSIONAL DISORDER, UNSPECIFIED TYPE
     Route: 030
  3. RISPERIDONE [Suspect]
     Indication: DELUSIONAL DISORDER, UNSPECIFIED TYPE
     Route: 048
  4. MIRTAZAPINE [Concomitant]
     Route: 065

REACTIONS (4)
  - AKATHISIA [None]
  - DEPRESSION [None]
  - TREATMENT NONCOMPLIANCE [None]
  - TREMOR [None]
